FAERS Safety Report 25240318 (Version 1)
Quarter: 2025Q2

REPORT INFORMATION
  Report Type: Spontaneous
  Country: US (occurrence: US)
  Receive Date: 20250425
  Receipt Date: 20250425
  Transmission Date: 20250717
  Serious: No
  Sender: PFIZER
  Company Number: US-PFIZER INC-202400290467

PATIENT
  Age: 73 Year
  Sex: Female

DRUGS (2)
  1. VELSIPITY [Suspect]
     Active Substance: ETRASIMOD ARGININE
  2. DORZOLAMIDE [Concomitant]
     Active Substance: DORZOLAMIDE

REACTIONS (1)
  - Dry mouth [Unknown]
